FAERS Safety Report 25763996 (Version 1)
Quarter: 2025Q3

REPORT INFORMATION
  Report Type: Other
  Country: GB (occurrence: GB)
  Receive Date: 20250905
  Receipt Date: 20250905
  Transmission Date: 20251020
  Serious: Yes (Other)
  Sender: Atnahs Healthcare
  Company Number: GB-MHRA-TPP47405732C4247448YC1756626301576

PATIENT

DRUGS (5)
  1. NAPROSYN [Suspect]
     Active Substance: NAPROXEN
     Indication: Ill-defined disorder
     Route: 065
     Dates: start: 20250811
  2. IBUPROFEN [Concomitant]
     Active Substance: IBUPROFEN
     Indication: Ill-defined disorder
     Dates: start: 20250709, end: 20250712
  3. OMEPRAZOLE [Concomitant]
     Active Substance: OMEPRAZOLE
     Indication: Ill-defined disorder
     Dates: start: 20250811
  4. BECLOMETHASONE DIPROPIONATE [Concomitant]
     Active Substance: BECLOMETHASONE DIPROPIONATE
     Indication: Ill-defined disorder
     Dates: start: 20250811
  5. DICLOFENAC DIETHYLAMINE [Concomitant]
     Active Substance: DICLOFENAC DIETHYLAMINE
     Indication: Ill-defined disorder
     Dates: start: 20250831

REACTIONS (1)
  - Abdominal pain upper [Recovered/Resolved]
